FAERS Safety Report 12386087 (Version 1)
Quarter: 2016Q2

REPORT INFORMATION
  Report Type: Spontaneous
  Country: US (occurrence: US)
  Receive Date: 20160519
  Receipt Date: 20160519
  Transmission Date: 20160815
  Serious: Yes (Other)
  Sender: FDA-Public Use
  Company Number: US-TEVA-660405USA

PATIENT
  Sex: Male

DRUGS (2)
  1. XTANDI [Suspect]
     Active Substance: ENZALUTAMIDE
     Indication: PROSTATE CANCER
     Dosage: 160 MILLIGRAM DAILY; 160 MG (4X40 MG), ONCE DAILY
     Route: 048
     Dates: start: 20140312
  2. WARFARIN [Suspect]
     Active Substance: WARFARIN
     Indication: PRODUCT USED FOR UNKNOWN INDICATION
     Route: 065

REACTIONS (17)
  - Facial pain [Unknown]
  - Hypersomnia [Unknown]
  - Prostatic specific antigen increased [Unknown]
  - Flushing [Unknown]
  - Deep vein thrombosis [Unknown]
  - Potentiating drug interaction [Unknown]
  - Limb discomfort [Unknown]
  - Local swelling [Recovered/Resolved]
  - Swelling face [Unknown]
  - Ear swelling [Recovered/Resolved]
  - Neck pain [Unknown]
  - International normalised ratio decreased [Unknown]
  - Erythema [Not Recovered/Not Resolved]
  - Micturition urgency [Unknown]
  - Pollakiuria [Unknown]
  - Ear pain [Unknown]
  - Fatigue [Unknown]

NARRATIVE: CASE EVENT DATE: 2016
